FAERS Safety Report 16989763 (Version 2)
Quarter: 2020Q1

REPORT INFORMATION
  Report Type: Spontaneous
  Country: SE (occurrence: SE)
  Receive Date: 20191104
  Receipt Date: 20200116
  Transmission Date: 20200409
  Serious: Yes (Other)
  Sender: FDA-Public Use
  Company Number: SE-AMGEN-SWESP2019182096

PATIENT
  Age: 48 Year
  Sex: Female

DRUGS (2)
  1. AIMOVIG [Suspect]
     Active Substance: ERENUMAB-AOOE
     Indication: PRODUCT USED FOR UNKNOWN INDICATION
     Dosage: UNK
     Route: 065
     Dates: start: 201902
  2. WARAN [Concomitant]
     Active Substance: WARFARIN SODIUM
     Indication: PRODUCT USED FOR UNKNOWN INDICATION
     Dosage: UNK
     Route: 065

REACTIONS (1)
  - Cerebellar stroke [Recovered/Resolved]

NARRATIVE: CASE EVENT DATE: 201908
